FAERS Safety Report 9933665 (Version 1)
Quarter: 2014Q1

REPORT INFORMATION
  Report Type: Spontaneous
  Country: US (occurrence: US)
  Receive Date: 20140228
  Receipt Date: 20140228
  Transmission Date: 20141002
  Serious: No
  Sender: FDA-Public Use
  Company Number: US-ABBVIE-13P-163-1181396-00

PATIENT
  Age: 60 Year
  Sex: Male

DRUGS (9)
  1. ANDROGEL [Suspect]
     Indication: BLOOD TESTOSTERONE DECREASED
     Dates: start: 20131211
  2. NORCO [Concomitant]
     Indication: PRODUCT USED FOR UNKNOWN INDICATION
  3. XARELTO [Concomitant]
     Indication: PRODUCT USED FOR UNKNOWN INDICATION
  4. LIPITOR [Concomitant]
     Indication: PRODUCT USED FOR UNKNOWN INDICATION
  5. VIAGRA [Concomitant]
     Indication: PRODUCT USED FOR UNKNOWN INDICATION
  6. MOBIC [Concomitant]
     Indication: PRODUCT USED FOR UNKNOWN INDICATION
  7. EFFEXOR [Concomitant]
     Indication: PRODUCT USED FOR UNKNOWN INDICATION
  8. ALTACE [Concomitant]
     Indication: PRODUCT USED FOR UNKNOWN INDICATION
  9. HYDROCHLOROTHIAZIDE [Concomitant]
     Indication: PRODUCT USED FOR UNKNOWN INDICATION

REACTIONS (2)
  - Drug administered at inappropriate site [Recovered/Resolved]
  - Libido increased [Not Recovered/Not Resolved]
